FAERS Safety Report 17050397 (Version 2)
Quarter: 2019Q4

REPORT INFORMATION
  Report Type: Spontaneous
  Country: JP (occurrence: JP)
  Receive Date: 20191119
  Receipt Date: 20191212
  Transmission Date: 20200122
  Serious: Yes (Hospitalization)
  Sender: FDA-Public Use
  Company Number: NVSJ2019JP003439

PATIENT
  Age: 91 Year
  Sex: Male

DRUGS (3)
  1. RIFAMPICIN CAPSULES [Suspect]
     Active Substance: RIFAMPIN
     Indication: TUBERCULOSIS
     Dosage: 4 DF, BID
     Route: 048
  2. RIFAMPICIN CAPSULES [Suspect]
     Active Substance: RIFAMPIN
     Dosage: 8 DF,UNKNOWN
     Route: 048
  3. ISCOTIN [Suspect]
     Active Substance: ISONIAZID
     Indication: PRODUCT USED FOR UNKNOWN INDICATION
     Dosage: UNK
     Route: 065

REACTIONS (2)
  - Constipation [Unknown]
  - Overdose [Unknown]

NARRATIVE: CASE EVENT DATE: 20191105
